FAERS Safety Report 15186446 (Version 2)
Quarter: 2019Q1

REPORT INFORMATION
  Report Type: Report from Study
  Country: US (occurrence: US)
  Receive Date: 20180723
  Receipt Date: 20190130
  Transmission Date: 20190417
  Serious: No
  Sender: FDA-Public Use
  Company Number: US-EXELIXIS-CABO-17011546

PATIENT
  Age: 76 Year
  Sex: Male

DRUGS (5)
  1. CABOMETYX [Suspect]
     Active Substance: CABOZANTINIB S-MALATE
     Indication: RENAL CANCER
     Dosage: 40 MG, QD
     Route: 048
     Dates: start: 20171102
  2. CALCIUM [Concomitant]
     Active Substance: CALCIUM
  3. BACLOFEN. [Concomitant]
     Active Substance: BACLOFEN
  4. DULOXETINE. [Concomitant]
     Active Substance: DULOXETINE
  5. CENTRUM [Concomitant]
     Active Substance: VITAMINS

REACTIONS (1)
  - Adverse drug reaction [Unknown]

NARRATIVE: CASE EVENT DATE: 20171116
